FAERS Safety Report 4886486-7 (Version None)
Quarter: 2006Q1

REPORT INFORMATION
  Report Type: 
  Country: None (occurrence: None)
  Receive Date: 20060120
  Receipt Date: 20060112
  Transmission Date: 20060701
  Serious: Yes (Other)
  Sender: FDA-Public Use
  Company Number: US-JNJFOC-20060103333

PATIENT
  Sex: Female

DRUGS (10)
  1. HALOPERIDOL DECANOATE [Suspect]
     Indication: SCHIZOPHRENIA
     Route: 030
  2. THEOPHYLLINE [Concomitant]
  3. ZYRTEC [Concomitant]
     Indication: DRUG USE FOR UNKNOWN INDICATION
  4. PIROXICAM [Concomitant]
  5. LASIX [Concomitant]
  6. ADVAIR DISKUS 250/50 [Concomitant]
  7. ADVAIR DISKUS 250/50 [Concomitant]
  8. CYCLOBENZAPRINE HCL [Concomitant]
  9. LEVAQUIN [Concomitant]
  10. FLEXERIL [Concomitant]
     Indication: DRUG USE FOR UNKNOWN INDICATION

REACTIONS (1)
  - RHABDOMYOLYSIS [None]
